FAERS Safety Report 5634146-7 (Version None)
Quarter: 2008Q1

REPORT INFORMATION
  Report Type: 
  Country: None (occurrence: None)
  Receive Date: 20080131
  Receipt Date: 20070705
  Transmission Date: 20080703
  Serious: Yes (Other)
  Sender: FDA-Public Use
  Company Number: 158615USA

PATIENT
  Sex: Female

DRUGS (1)
  1. COPAXONE [Suspect]
     Indication: MULTIPLE SCLEROSIS
     Dosage: (20 MG),SUBCUTANEOUS
     Route: 058

REACTIONS (12)
  - DYSPNOEA [None]
  - ERYTHROPSIA [None]
  - EYE SWELLING [None]
  - HEART RATE IRREGULAR [None]
  - LOSS OF CONSCIOUSNESS [None]
  - MUSCLE TWITCHING [None]
  - PAIN [None]
  - PULSE ABSENT [None]
  - SWELLING [None]
  - SWELLING FACE [None]
  - SYNCOPE [None]
  - VISUAL DISTURBANCE [None]
